FAERS Safety Report 22380990 (Version 1)
Quarter: 2023Q2

REPORT INFORMATION
  Report Type: Other
  Country: IN (occurrence: None)
  Receive Date: 20230530
  Receipt Date: 20230530
  Transmission Date: 20230722
  Serious: Yes (Death)
  Sender: FDA-Public Use
  Company Number: IN-ROCHE-3330075

PATIENT
  Age: 50 Year
  Sex: Male

DRUGS (1)
  1. TECENTRIQ [Suspect]
     Active Substance: ATEZOLIZUMAB
     Indication: Lung squamous cell carcinoma metastatic
     Dosage: INTERVAL: 32 DAYS
     Route: 042
     Dates: start: 20221205

REACTIONS (2)
  - Asthenia [Unknown]
  - Death [Fatal]

NARRATIVE: CASE EVENT DATE: 20230401
